FAERS Safety Report 4481283-9 (Version None)
Quarter: 2004Q4

REPORT INFORMATION
  Report Type: 
  Country: None (occurrence: None)
  Receive Date: 20040923
  Receipt Date: 20040806
  Transmission Date: 20050328
  Serious: No
  Sender: FDA-Public Use
  Company Number: USA030537720

PATIENT
  Age: 77 Year
  Sex: Female
  Weight: 65 kg

DRUGS (6)
  1. FORTEO [Suspect]
     Indication: OSTEOPOROSIS
     Dosage: 20 UG DAY
     Dates: start: 20030320
  2. NITROFURANTOIN [Concomitant]
  3. MULTIVITAMIN [Concomitant]
  4. MAGNESIUM [Concomitant]
  5. CALTRATE (CALCIUIM CARBONATE) [Concomitant]
  6. NEXIUM [Concomitant]

REACTIONS (3)
  - BONE PAIN [None]
  - LIMB DISCOMFORT [None]
  - TOOTH INJURY [None]
